FAERS Safety Report 4316017-1 (Version None)
Quarter: 2004Q1

REPORT INFORMATION
  Report Type: 
  Country: None (occurrence: None)
  Receive Date: 20040311
  Receipt Date: 20040119
  Transmission Date: 20041129
  Serious: Yes (Hospitalization)
  Sender: FDA-Public Use
  Company Number: WAES 0401DEU00083

PATIENT
  Age: 55 Year
  Sex: Male
  Weight: 89 kg

DRUGS (8)
  1. ASPIRIN [Concomitant]
     Indication: CORONARY ARTERY DISEASE
     Route: 048
  2. ATORVASTATIN CALCIUM [Suspect]
     Indication: HYPERLIPIDAEMIA
     Route: 048
  3. CYCLOSPORINE [Concomitant]
     Indication: HEART TRANSPLANT
     Route: 048
  4. DILTIAZEM HYDROCHLORIDE [Concomitant]
     Indication: HYPERTENSION
     Route: 048
  5. ZETIA [Suspect]
     Indication: HYPERLIPIDAEMIA
     Route: 048
     Dates: start: 20021215, end: 20031008
  6. FUROSEMIDE [Concomitant]
     Route: 048
  7. MYCOPHENOLATE MOFETIL [Concomitant]
  8. PANTOPRAZOLE SODIUM [Concomitant]
     Route: 048

REACTIONS (6)
  - ASCITES [None]
  - HEPATIC FIBROSIS [None]
  - HEPATOCELLULAR DAMAGE [None]
  - HEPATOTOXICITY [None]
  - PLEURAL EFFUSION [None]
  - VEIN DISORDER [None]
